FAERS Safety Report 7951705-7 (Version None)
Quarter: 2011Q4

REPORT INFORMATION
  Report Type: 
  Country: None (occurrence: None)
  Receive Date: 20111201
  Receipt Date: 20111122
  Transmission Date: 20120403
  Serious: Yes (Other)
  Sender: FDA-Public Use
  Company Number: US-JNJFOC-20111110043

PATIENT
  Age: 56 Year
  Sex: Female
  Weight: 72.58 kg

DRUGS (2)
  1. ROGAINE EXTRA STRENGTH (FOR MEN) [Suspect]
     Route: 061
  2. ROGAINE EXTRA STRENGTH (FOR MEN) [Suspect]
     Indication: ALOPECIA
     Dosage: AS DIRECTED, FOR ABOUT THREE YEARS
     Route: 061
     Dates: end: 20111120

REACTIONS (5)
  - PRURITUS [None]
  - WRONG DRUG ADMINISTERED [None]
  - UNDERDOSE [None]
  - BLISTER [None]
  - PRODUCT QUALITY ISSUE [None]
